FAERS Safety Report 8172564-6 (Version None)
Quarter: 2012Q1

REPORT INFORMATION
  Report Type: 
  Country: None (occurrence: None)
  Receive Date: 20120229
  Receipt Date: 20120222
  Transmission Date: 20120608
  Serious: No
  Sender: FDA-Public Use
  Company Number: US-PFIZER INC-2012016930

PATIENT
  Sex: Female

DRUGS (2)
  1. MORPHINE SULFATE [Suspect]
     Dosage: UNK
     Route: 042
     Dates: start: 19900101, end: 19900101
  2. CODEINE PHOSPHATE [Suspect]
     Dosage: UNK
     Route: 048
     Dates: start: 19900101, end: 19900101

REACTIONS (4)
  - VOMITING [None]
  - DYSPNOEA [None]
  - DRUG HYPERSENSITIVITY [None]
  - SWELLING [None]
